FAERS Safety Report 21485639 (Version 4)
Quarter: 2023Q1

REPORT INFORMATION
  Report Type: Report from Study
  Country: CA (occurrence: CA)
  Receive Date: 20221020
  Receipt Date: 20230214
  Transmission Date: 20230417
  Serious: Yes (Other)
  Sender: FDA-Public Use
  Company Number: CA-TAKEDA-2022TUS073906

PATIENT
  Age: 57 Year
  Sex: Female

DRUGS (11)
  1. VEDOLIZUMAB [Suspect]
     Active Substance: VEDOLIZUMAB
     Indication: Crohn^s disease
     Dosage: 300 MILLIGRAM
     Route: 042
     Dates: start: 20150813
  2. VEDOLIZUMAB [Suspect]
     Active Substance: VEDOLIZUMAB
     Dosage: 300 MILLIGRAM, Q6WEEKS
     Route: 042
     Dates: start: 20170609
  3. VEDOLIZUMAB [Suspect]
     Active Substance: VEDOLIZUMAB
     Dosage: 300 MILLIGRAM, Q6WEEKS
     Route: 042
  4. VEDOLIZUMAB [Suspect]
     Active Substance: VEDOLIZUMAB
     Dosage: 300 MILLIGRAM, Q6WEEKS
     Route: 042
  5. AMOXICILLIN\CLAVULANIC ACID [Suspect]
     Active Substance: AMOXICILLIN\CLAVULANIC ACID
     Indication: Pneumonia
     Dosage: UNK
     Route: 065
  6. AZITHROMYCIN [Suspect]
     Active Substance: AZITHROMYCIN
     Indication: Pneumonia
     Dosage: UNK
     Route: 065
  7. DOXYCYCLINE HYDROCHLORIDE [Suspect]
     Active Substance: DOXYCYCLINE HYDROCHLORIDE
     Indication: Pneumonia
     Dosage: UNK
     Route: 065
  8. ENTOCORT [Concomitant]
     Active Substance: BUDESONIDE
     Dosage: 3 MILLIGRAM, QD
  9. VITAMIN D [Concomitant]
     Active Substance: VITAMIN D NOS
     Dosage: UNK
  10. VITAMIN B12 [Concomitant]
     Active Substance: CYANOCOBALAMIN
     Dosage: UNK UNK, MONTHLY
  11. SYNTHROID [Concomitant]
     Active Substance: LEVOTHYROXINE SODIUM
     Dosage: 0.125 MILLIGRAM, QD

REACTIONS (11)
  - Crohn^s disease [Recovering/Resolving]
  - Pneumonia [Recovered/Resolved]
  - COVID-19 [Unknown]
  - Dry throat [Unknown]
  - Neck pain [Unknown]
  - Diarrhoea [Unknown]
  - Rhinorrhoea [Unknown]
  - Abdominal pain [Unknown]
  - Headache [Unknown]
  - Oropharyngeal pain [Unknown]
  - Off label use [Unknown]

NARRATIVE: CASE EVENT DATE: 20170609
